FAERS Safety Report 6441458-6 (Version None)
Quarter: 2009Q4

REPORT INFORMATION
  Report Type: 
  Country: None (occurrence: None)
  Receive Date: 20091116
  Receipt Date: 20091110
  Transmission Date: 20100525
  Serious: Yes (Hospitalization)
  Sender: FDA-Public Use
  Company Number: A0816551A

PATIENT
  Age: 57 Year
  Sex: Male
  Weight: 127.3 kg

DRUGS (1)
  1. AVANDIA [Suspect]
     Indication: DIABETES MELLITUS
     Dosage: 8MG PER DAY
     Route: 048
     Dates: start: 20030101, end: 20050901

REACTIONS (5)
  - CARDIAC DISORDER [None]
  - CARDIAC FIBRILLATION [None]
  - EYE INJURY [None]
  - FLUID RETENTION [None]
  - RESPIRATORY FAILURE [None]
